FAERS Safety Report 4428559-9 (Version None)
Quarter: 2004Q3

REPORT INFORMATION
  Report Type: 
  Country: None (occurrence: None)
  Receive Date: 20040818
  Receipt Date: 20030812
  Transmission Date: 20050211
  Serious: No
  Sender: FDA-Public Use
  Company Number: US-BRISTOL-MYERS SQUIBB COMPANY-12353108

PATIENT
  Age: 54 Year
  Sex: Male

DRUGS (3)
  1. BLEOMYCIN [Suspect]
     Indication: HODGKIN'S DISEASE
     Dosage: THIRD TREATMENT - 20 UNITS
     Route: 042
  2. ADRIAMYCIN PFS [Concomitant]
     Indication: HODGKIN'S DISEASE
  3. VINCRISTINE [Concomitant]
     Indication: HODGKIN'S DISEASE

REACTIONS (1)
  - PYREXIA [None]
